FAERS Safety Report 8936346 (Version 5)
Quarter: 2013Q1

REPORT INFORMATION
  Report Type: Report from Study
  Country: AU (occurrence: AU)
  Receive Date: 20121130
  Receipt Date: 20130118
  Transmission Date: 20140127
  Serious: Yes (Death, Hospitalization, Other)
  Sender: FDA-Public Use
  Company Number: AU-AMGEN-AUSCT2012075820

PATIENT
  Age: 80 Year
  Sex: Female

DRUGS (18)
  1. DENOSUMAB [Suspect]
     Indication: OSTEOPOROSIS POSTMENOPAUSAL
     Dosage: UNK UNK, Q6MO
     Route: 058
     Dates: start: 20080317, end: 20120917
  2. ANTIBIOTICS [Concomitant]
     Route: 048
  3. ASPIRIN [Concomitant]
     Dosage: 100 MG, QD
     Route: 048
     Dates: start: 2002
  4. AVAPRO [Concomitant]
     Dosage: 75 MG, QD
     Route: 048
     Dates: start: 2003
  5. SPIRIVA [Concomitant]
     Dosage: 18 MUG, QD
     Dates: start: 20040820
  6. SANDOMIGRAN [Concomitant]
     Dosage: 500 MUG, QID
     Route: 048
     Dates: start: 2000
  7. VENTOLIN [Concomitant]
     Dosage: 100 MG, PRN
     Dates: start: 200904
  8. CALCIUM + VIT D [Concomitant]
  9. DIAZEPAM [Concomitant]
     Dosage: 4 MG, QD
     Route: 048
     Dates: start: 2000
  10. METOCLOPRAMIDE [Concomitant]
     Dosage: 10 MG, PRN
     Route: 048
     Dates: start: 200810
  11. PANTOPRAZOLE [Concomitant]
     Dosage: 40 MG, QD
     Route: 048
     Dates: start: 201101
  12. SIMVASTATIN [Concomitant]
     Dosage: 80 MG, QD
     Route: 048
     Dates: start: 201101
  13. DIPYRIDAMOLE [Concomitant]
     Dosage: 200 MG, QD
     Route: 048
     Dates: start: 2007
  14. ROXYTHROMYCIN [Concomitant]
     Dosage: 150 MG, BID
     Route: 048
     Dates: start: 20121014
  15. NORSPAN [Concomitant]
     Dosage: UNK
     Dates: start: 2009
  16. PICOLAX [Concomitant]
  17. SYMBICORT [Concomitant]
  18. LAXATIVES [Concomitant]

REACTIONS (4)
  - Intestinal obstruction [Fatal]
  - Metastatic squamous cell carcinoma [Recovered/Resolved]
  - Squamous cell carcinoma of the oral cavity [Recovered/Resolved]
  - Anaemia [Recovered/Resolved]
